FAERS Safety Report 5021467-4 (Version None)
Quarter: 2006Q2

REPORT INFORMATION
  Report Type: 
  Country: None (occurrence: None)
  Receive Date: 20060605
  Receipt Date: 20060523
  Transmission Date: 20061013
  Serious: Yes (Hospitalization)
  Sender: FDA-Public Use
  Company Number: 230002L06USA

PATIENT
  Age: 57 Year
  Sex: Male

DRUGS (5)
  1. INTERFERON BETA                   (INTERFERON BETA) [Suspect]
     Indication: MULTIPLE SCLEROSIS
  2. ACETYLSALICYLIC ACID SRT [Concomitant]
  3. BETA BLOCKING AGENTS [Concomitant]
  4. OTHER CHOLESTEROL AND TRIGYLCERIDE REDUCERS [Concomitant]
  5. ACE INHIBITOR NOS [Concomitant]

REACTIONS (4)
  - ANGINA UNSTABLE [None]
  - ELECTROCARDIOGRAM ST SEGMENT DEPRESSION [None]
  - REFUSAL OF TREATMENT BY PATIENT [None]
  - VISUAL FIELD DEFECT [None]
